FAERS Safety Report 4790244-1 (Version None)
Quarter: 2005Q4

REPORT INFORMATION
  Report Type: 
  Country: None (occurrence: None)
  Receive Date: 20051006
  Receipt Date: 20050930
  Transmission Date: 20060501
  Serious: Yes (Hospitalization)
  Sender: FDA-Public Use
  Company Number: 200512813JP

PATIENT
  Age: 80 Year
  Sex: Female

DRUGS (2)
  1. AMARYL [Suspect]
     Indication: DIABETES MELLITUS
     Route: 048
     Dates: end: 20050925
  2. BASEN [Concomitant]
     Route: 048

REACTIONS (1)
  - HYPOGLYCAEMIC COMA [None]
